FAERS Safety Report 11158658 (Version 1)
Quarter: 2015Q2

REPORT INFORMATION
  Report Type: Spontaneous
  Country: US (occurrence: None)
  Receive Date: 20150602
  Receipt Date: 20150602
  Transmission Date: 20150821
  Serious: Yes (Disabling)
  Sender: FDA-Public Use
  Company Number: None

PATIENT
  Age: 66 Year
  Sex: Female
  Weight: 72.58 kg

DRUGS (9)
  1. LOVASTATIN. [Concomitant]
     Active Substance: LOVASTATIN
  2. METFORMIN [Concomitant]
     Active Substance: METFORMIN HYDROCHLORIDE
  3. GLIPIZIDE. [Concomitant]
     Active Substance: GLIPIZIDE
  4. TRAMADOL [Concomitant]
     Active Substance: TRAMADOL
  5. AMBIEN [Concomitant]
     Active Substance: ZOLPIDEM TARTRATE
  6. BENAZEPRIL [Concomitant]
     Active Substance: BENAZEPRIL\BENAZEPRIL HYDROCHLORIDE
  7. LAMICTAL [Concomitant]
     Active Substance: LAMOTRIGINE
  8. XANAX [Concomitant]
     Active Substance: ALPRAZOLAM
  9. LAMOTRIGINE 100 MG GENERIC [Suspect]
     Active Substance: LAMOTRIGINE
     Indication: BIPOLAR DISORDER
     Dosage: 1 PILL
     Route: 048
     Dates: start: 20131125, end: 20150601

REACTIONS (1)
  - Vitiligo [None]

NARRATIVE: CASE EVENT DATE: 20140811
